FAERS Safety Report 7934309-1 (Version None)
Quarter: 2011Q4

REPORT INFORMATION
  Report Type: 
  Country: None (occurrence: None)
  Receive Date: 20111122
  Receipt Date: 20111111
  Transmission Date: 20120403
  Serious: Yes (Hospitalization)
  Sender: FDA-Public Use
  Company Number: US-JNJFOC-20100703145

PATIENT
  Sex: Male
  Weight: 3.18 kg

DRUGS (2)
  1. CONCENTRATED TYLENOL INFANT DROPS [Suspect]
     Indication: PYREXIA
     Route: 048
     Dates: start: 20091222, end: 20091224
  2. CONCENTRATED TYLENOL INFANT DROPS [Suspect]
     Indication: INJECTION
     Route: 048
     Dates: start: 20091222, end: 20091224

REACTIONS (3)
  - RESPIRATORY ARREST [None]
  - PRODUCT QUALITY ISSUE [None]
  - MALAISE [None]
